FAERS Safety Report 25550101 (Version 1)
Quarter: 2025Q3

REPORT INFORMATION
  Report Type: Spontaneous
  Country: US (occurrence: None)
  Receive Date: 20250711
  Receipt Date: 20250711
  Transmission Date: 20251020
  Serious: No
  Sender: FDA-CTU
  Company Number: None

PATIENT
  Age: 69 Year

DRUGS (1)
  1. SARCLISA [Suspect]
     Active Substance: ISATUXIMAB-IRFC
     Route: 042
     Dates: start: 20250102

REACTIONS (2)
  - Musculoskeletal disorder [None]
  - Impaired work ability [None]

NARRATIVE: CASE EVENT DATE: 20250711
